FAERS Safety Report 7168809 (Version 2)
Quarter: 2013Q2

REPORT INFORMATION
  Report Type: Spontaneous
  Country: US (occurrence: US)
  Receive Date: 20091106
  Receipt Date: 20130626
  Transmission Date: 20140414
  Serious: No
  Sender: FDA-Public Use
  Company Number: US-BAYER-200935898NA

PATIENT
  Age: 37 Year
  Sex: Female

DRUGS (1)
  1. MIRENA [Suspect]
     Indication: CONTRACEPTION
     Dosage: 20 MCG/24HR, CONT
     Route: 015
     Dates: start: 20081029, end: 20091006

REACTIONS (5)
  - Abdominal pain lower [Unknown]
  - Vaginal haemorrhage [Unknown]
  - Menstrual disorder [Unknown]
  - Device expulsion [Unknown]
  - Discomfort [None]
